FAERS Safety Report 20954400 (Version 2)
Quarter: 2022Q2

REPORT INFORMATION
  Report Type: Spontaneous
  Country: US (occurrence: None)
  Receive Date: 20220614
  Receipt Date: 20220615
  Transmission Date: 20220721
  Serious: Yes (Hospitalization)
  Sender: FDA-Public Use
  Company Number: US-MDD US Operations-MDD202108-001585

PATIENT
  Age: 76 Year
  Sex: Male
  Weight: 58.96 kg

DRUGS (6)
  1. APOKYN [Suspect]
     Active Substance: APOMORPHINE HYDROCHLORIDE
     Indication: Parkinson^s disease
     Dosage: NOT PROVIDED
     Route: 058
     Dates: start: 20130301
  2. SINEMET [Concomitant]
     Active Substance: CARBIDOPA\LEVODOPA
     Dosage: 25/100
  3. NEURONTIN [Concomitant]
     Active Substance: GABAPENTIN
  4. TASMAR [Concomitant]
     Active Substance: TOLCAPONE
  5. LOVENOX [Concomitant]
     Active Substance: ENOXAPARIN SODIUM
     Route: 058
  6. HUMALOG [Concomitant]
     Active Substance: INSULIN LISPRO
     Dosage: 0-6 UNITS

REACTIONS (1)
  - Pneumonia aspiration [Recovered/Resolved]

NARRATIVE: CASE EVENT DATE: 20210628
